FAERS Safety Report 7028250-9 (Version None)
Quarter: 2010Q4

REPORT INFORMATION
  Report Type: 
  Country: None (occurrence: None)
  Receive Date: 20101005
  Receipt Date: 20081219
  Transmission Date: 20110411
  Serious: Yes (Death, Hospitalization)
  Sender: FDA-Public Use
  Company Number: GB-ROCHE-604205

PATIENT

DRUGS (2)
  1. XELODA [Suspect]
     Indication: PRODUCT USED FOR UNKNOWN INDICATION
     Route: 065
  2. OXALIPLATIN [Concomitant]

REACTIONS (4)
  - DEATH [None]
  - DIARRHOEA [None]
  - SEPSIS [None]
  - THROMBOCYTOPENIA [None]
